FAERS Safety Report 13472411 (Version 1)
Quarter: 2017Q2

REPORT INFORMATION
  Report Type: Spontaneous
  Country: US (occurrence: US)
  Receive Date: 20170424
  Receipt Date: 20170424
  Transmission Date: 20170830
  Serious: Yes (Other)
  Sender: FDA-Public Use
  Company Number: US-SUNOVION-2017SUN001695

PATIENT
  Age: 57 Year
  Sex: Male

DRUGS (9)
  1. LITHIUM. [Concomitant]
     Active Substance: LITHIUM
     Dosage: 300 MG, IN AM
     Route: 048
  2. LITHIUM. [Concomitant]
     Active Substance: LITHIUM
     Dosage: 600 MG, QHS
     Route: 048
  3. COGENTIN [Concomitant]
     Active Substance: BENZTROPINE MESYLATE
     Indication: NERVOUSNESS
     Dosage: 0.5 MG, BID
     Route: 048
  4. LEXAPRO [Concomitant]
     Active Substance: ESCITALOPRAM OXALATE
     Dosage: 30 MG, QD
     Route: 048
  5. CLONAZEPAM. [Concomitant]
     Active Substance: CLONAZEPAM
     Dosage: 0.5 MG, BID
  6. LATUDA [Suspect]
     Active Substance: LURASIDONE HYDROCHLORIDE
     Indication: SCHIZOPHRENIA
     Dosage: 60 MG, QHS
     Route: 048
     Dates: start: 20170404, end: 20170411
  7. LATUDA [Suspect]
     Active Substance: LURASIDONE HYDROCHLORIDE
     Indication: BIPOLAR DISORDER
     Dosage: 40 MG,QHS
     Route: 048
     Dates: start: 201703, end: 20170403
  8. LATUDA [Suspect]
     Active Substance: LURASIDONE HYDROCHLORIDE
     Dosage: 100 MG, QHS
     Route: 048
     Dates: start: 20170412
  9. TRAZODONE [Concomitant]
     Active Substance: TRAZODONE HYDROCHLORIDE
     Indication: SLEEP DISORDER
     Dosage: 150 MG, QHS
     Route: 048

REACTIONS (15)
  - Tachyphrenia [Not Recovered/Not Resolved]
  - Drug ineffective [Not Recovered/Not Resolved]
  - Thirst [Not Recovered/Not Resolved]
  - Asthenia [Not Recovered/Not Resolved]
  - Fatigue [Not Recovered/Not Resolved]
  - Bipolar disorder [Not Recovered/Not Resolved]
  - Schizophrenia [Not Recovered/Not Resolved]
  - Loss of consciousness [Not Recovered/Not Resolved]
  - Memory impairment [Not Recovered/Not Resolved]
  - Mania [Not Recovered/Not Resolved]
  - Abnormal behaviour [Not Recovered/Not Resolved]
  - Fall [Not Recovered/Not Resolved]
  - Restlessness [Not Recovered/Not Resolved]
  - Confusional state [Not Recovered/Not Resolved]
  - Phobia [Not Recovered/Not Resolved]

NARRATIVE: CASE EVENT DATE: 201703
